FAERS Safety Report 12277170 (Version 2)
Quarter: 2016Q2

REPORT INFORMATION
  Report Type: Spontaneous
  Country: US (occurrence: US)
  Receive Date: 20160418
  Receipt Date: 20160420
  Transmission Date: 20160815
  Serious: No
  Sender: FDA-Public Use
  Company Number: US-TEVA-632768USA

PATIENT
  Age: 40 Year
  Sex: Female

DRUGS (18)
  1. AMANTADINE [Concomitant]
     Active Substance: AMANTADINE
  2. APLENSIN [Concomitant]
  3. MS CONTIN [Concomitant]
     Active Substance: MORPHINE SULFATE
  4. SINGULAIR [Concomitant]
     Active Substance: MONTELUKAST SODIUM
  5. VYVANSE [Concomitant]
     Active Substance: LISDEXAMFETAMINE DIMESYLATE
  6. CAMBIA [Concomitant]
     Active Substance: DICLOFENAC POTASSIUM
  7. NEXIUM [Concomitant]
     Active Substance: ESOMEPRAZOLE MAGNESIUM
  8. ZOLOFT [Concomitant]
     Active Substance: SERTRALINE HYDROCHLORIDE
  9. ZECUITY [Suspect]
     Active Substance: SUMATRIPTAN SUCCINATE
     Route: 062
     Dates: start: 20160203, end: 20160203
  10. ATIVAN [Concomitant]
     Active Substance: LORAZEPAM
  11. ZYRTEC [Concomitant]
     Active Substance: CETIRIZINE HYDROCHLORIDE
  12. GEODON [Concomitant]
     Active Substance: ZIPRASIDONE HYDROCHLORIDE\ZIPRASIDONE MESYLATE
  13. ZECUITY [Suspect]
     Active Substance: SUMATRIPTAN SUCCINATE
     Route: 062
     Dates: start: 20160131, end: 20160131
  14. AMITIZA [Concomitant]
     Active Substance: LUBIPROSTONE
  15. FLONASE [Concomitant]
     Active Substance: FLUTICASONE PROPIONATE
  16. LITHIUM. [Concomitant]
     Active Substance: LITHIUM
  17. LYRICA [Concomitant]
     Active Substance: PREGABALIN
  18. PERCOCET [Concomitant]
     Active Substance: ACETAMINOPHEN\OXYCODONE HYDROCHLORIDE

REACTIONS (12)
  - Malaise [Unknown]
  - Application site exfoliation [Recovered/Resolved]
  - Device leakage [Not Recovered/Not Resolved]
  - Application site paraesthesia [Not Recovered/Not Resolved]
  - Application site pruritus [Unknown]
  - Application site urticaria [Unknown]
  - Application site erythema [Unknown]
  - Device use error [Unknown]
  - Application site pain [Unknown]
  - Migraine [Unknown]
  - Device adhesion issue [Not Recovered/Not Resolved]
  - Product adhesion issue [Unknown]

NARRATIVE: CASE EVENT DATE: 20160131
